FAERS Safety Report 9942149 (Version 1)
Quarter: 2014Q1

REPORT INFORMATION
  Report Type: Report from Study
  Country: US (occurrence: US)
  Receive Date: 20140303
  Receipt Date: 20140303
  Transmission Date: 20141002
  Serious: No
  Sender: FDA-Public Use
  Company Number: US-ABBVIE-13P-163-1041405-00

PATIENT
  Sex: Female

DRUGS (2)
  1. HUMIRA [Suspect]
     Indication: RHEUMATOID ARTHRITIS
  2. HUMIRA [Suspect]
     Dates: start: 2012

REACTIONS (5)
  - Injection site discolouration [Recovered/Resolved]
  - Injection site reaction [Unknown]
  - Injection site pain [Not Recovered/Not Resolved]
  - Injection site discolouration [Recovered/Resolved]
  - Injection site erythema [Unknown]
